FAERS Safety Report 4270104-5 (Version None)
Quarter: 2004Q1

REPORT INFORMATION
  Report Type: 
  Country: None (occurrence: None)
  Receive Date: 20040114
  Receipt Date: 20030307
  Transmission Date: 20041129
  Serious: No
  Sender: FDA-Public Use
  Company Number: US-GLAXOSMITHKLINE-A0399601A

PATIENT
  Age: 53 Year
  Sex: Male
  Weight: 64 kg

DRUGS (2)
  1. WELLBUTRIN [Suspect]
     Indication: DEPRESSION
     Dosage: 75MG PER DAY
     Route: 048
     Dates: end: 20021201
  2. REMERON [Suspect]
     Indication: DEPRESSION
     Dosage: 45MG PER DAY
     Route: 048
     Dates: start: 19990701, end: 20021201

REACTIONS (9)
  - CHEST DISCOMFORT [None]
  - DRUG INEFFECTIVE [None]
  - DRUG WITHDRAWAL SYNDROME [None]
  - INFLUENZA LIKE ILLNESS [None]
  - MALAISE [None]
  - NAUSEA [None]
  - PALPITATIONS [None]
  - RESTLESSNESS [None]
  - TREMOR [None]
